FAERS Safety Report 6611559-8 (Version None)
Quarter: 2010Q1

REPORT INFORMATION
  Report Type: 
  Country: None (occurrence: None)
  Receive Date: 20100303
  Receipt Date: 20100225
  Transmission Date: 20100710
  Serious: Yes (Other)
  Sender: FDA-Public Use
  Company Number: PHEH2008US01027

PATIENT
  Sex: Male

DRUGS (1)
  1. ELIDEL [Suspect]
     Route: 061
     Dates: start: 20040101

REACTIONS (3)
  - DERMATITIS ACNEIFORM [None]
  - ECZEMA [None]
  - MALIGNANT MELANOMA STAGE I [None]
